FAERS Safety Report 9770163 (Version 3)
Quarter: 2014Q1

REPORT INFORMATION
  Report Type: Spontaneous
  Country: DK (occurrence: DK)
  Receive Date: 20131218
  Receipt Date: 20140203
  Transmission Date: 20141002
  Serious: Yes (Hospitalization)
  Sender: FDA-Public Use
  Company Number: DK-ELI_LILLY_AND_COMPANY-DK201310002132

PATIENT
  Sex: Female
  Weight: 58 kg

DRUGS (7)
  1. FORSTEO [Suspect]
     Indication: OSTEOPOROSIS
     Dosage: UNK
     Route: 065
     Dates: start: 20130807
  2. METHOTREXATE [Suspect]
     Indication: RHEUMATOID ARTHRITIS
     Dosage: 1 DF, WEEKLY (1/W)
     Route: 065
     Dates: start: 20121001
  3. FOLIMET [Concomitant]
     Dosage: UNK, OTHER
     Route: 065
     Dates: start: 20131008
  4. PINEX [Concomitant]
     Indication: PAIN
     Dosage: UNK, OTHER
     Route: 065
     Dates: start: 20131111
  5. TRADOLAN [Concomitant]
     Indication: PAIN
     Dosage: UNK, OTHER
     Route: 065
     Dates: start: 20131004
  6. BONYL [Concomitant]
     Indication: PAIN
     Dosage: UNK, UNKNOWN
     Route: 065
  7. CALCIUM [Concomitant]

REACTIONS (5)
  - Gastric ulcer [Recovered/Resolved]
  - Weight decreased [Unknown]
  - Blood electrolytes abnormal [Unknown]
  - Blood calcium increased [Unknown]
  - Nausea [Unknown]
